FAERS Safety Report 10330900 (Version 2)
Quarter: 2014Q3

REPORT INFORMATION
  Report Type: Report from Study
  Country: TR (occurrence: TR)
  Receive Date: 20140722
  Receipt Date: 20140722
  Transmission Date: 20150326
  Serious: Yes (Hospitalization)
  Sender: FDA-Public Use
  Company Number: PHHY2013TR106980

PATIENT
  Age: 33 Year
  Sex: Male
  Weight: 75 kg

DRUGS (2)
  1. SANDOSTATIN LAR DEPOT [Suspect]
     Active Substance: OCTREOTIDE ACETATE
     Indication: ACROMEGALY
     Dosage: 30 MG, ONCE EVERY 4 WEEKS
     Route: 030
     Dates: start: 20110101
  2. EPDANTOIN [Concomitant]
     Dosage: 100 MG, 2X1

REACTIONS (6)
  - Loss of consciousness [Recovering/Resolving]
  - Fall [Recovering/Resolving]
  - Memory impairment [Unknown]
  - Hyperglycaemia [Recovering/Resolving]
  - Vomiting [Recovering/Resolving]
  - Nasopharyngitis [Not Recovered/Not Resolved]

NARRATIVE: CASE EVENT DATE: 20130919
